FAERS Safety Report 14433765 (Version 1)
Quarter: 2018Q1

REPORT INFORMATION
  Report Type: Spontaneous
  Country: FR (occurrence: FR)
  Receive Date: 20180124
  Receipt Date: 20180124
  Transmission Date: 20180509
  Serious: Yes (Other)
  Sender: FDA-Public Use
  Company Number: FR-MYLANLABS-2018M1004225

PATIENT
  Sex: Male

DRUGS (5)
  1. BENDAMUSTINE HYDROCHLORIDE. [Suspect]
     Active Substance: BENDAMUSTINE HYDROCHLORIDE
     Indication: NON-HODGKIN^S LYMPHOMA
     Dosage: 180 MG/M2, UNK
  2. AMIFOSTINE. [Suspect]
     Active Substance: AMIFOSTINE
     Indication: NON-HODGKIN^S LYMPHOMA
     Dosage: 740 MG/M2, UNK
  3. CYTARABINE. [Suspect]
     Active Substance: CYTARABINE
     Indication: NON-HODGKIN^S LYMPHOMA
     Dosage: 400 MG/M2, QD
  4. ETOPOSIDE. [Suspect]
     Active Substance: ETOPOSIDE
     Indication: NON-HODGKIN^S LYMPHOMA
     Dosage: 400 MG/M2, QD
  5. IBRITUMOMAB TIUXETAN [Suspect]
     Active Substance: IBRITUMOMAB TIUXETAN
     Indication: NON-HODGKIN^S LYMPHOMA
     Dosage: 1200 IU, UNK

REACTIONS (3)
  - Anaemia [Unknown]
  - Febrile neutropenia [Unknown]
  - Thrombocytopenia [Unknown]
